FAERS Safety Report 6795923-2 (Version None)
Quarter: 2010Q2

REPORT INFORMATION
  Report Type: 
  Country: None (occurrence: None)
  Receive Date: 20100625
  Receipt Date: 20100623
  Transmission Date: 20101027
  Serious: Yes (Life-Threatening, Hospitalization)
  Sender: FDA-Public Use
  Company Number: B0657424A

PATIENT
  Age: 64 Year
  Sex: Male

DRUGS (4)
  1. AMOXICILLIN [Suspect]
     Indication: LOWER RESPIRATORY TRACT INFECTION
     Route: 048
     Dates: start: 20100514, end: 20100514
  2. VITAMIN B-12 [Concomitant]
     Route: 030
     Dates: start: 20100514
  3. DIABETES MEDICATION [Concomitant]
  4. HYDROXOCOBALAMIN [Concomitant]
     Route: 030
     Dates: start: 20100514

REACTIONS (1)
  - ANAPHYLACTIC SHOCK [None]
